FAERS Safety Report 13457958 (Version 2)
Quarter: 2017Q2

REPORT INFORMATION
  Report Type: Spontaneous
  Country: CN (occurrence: CN)
  Receive Date: 20170419
  Receipt Date: 20170421
  Transmission Date: 20170830
  Serious: Yes (Life-Threatening, Hospitalization, Other)
  Sender: FDA-Public Use
  Company Number: CN-SA-2017SA067888

PATIENT
  Age: 60 Year
  Sex: Male

DRUGS (12)
  1. LEFLUNOMIDE. [Suspect]
     Active Substance: LEFLUNOMIDE
     Indication: RHEUMATOID ARTHRITIS
     Route: 048
     Dates: start: 2013, end: 2013
  2. METHYLPREDNISOLONE. [Suspect]
     Active Substance: METHYLPREDNISOLONE
     Indication: RHEUMATOID ARTHRITIS
     Route: 048
     Dates: start: 2013, end: 2013
  3. METHOTREXATE. [Suspect]
     Active Substance: METHOTREXATE
     Indication: RHEUMATOID ARTHRITIS
     Route: 048
     Dates: start: 2013, end: 2013
  4. METHYLPREDNISOLONE. [Suspect]
     Active Substance: METHYLPREDNISOLONE
     Indication: RHEUMATOID ARTHRITIS
     Route: 048
     Dates: start: 2013
  5. METHOTREXATE. [Suspect]
     Active Substance: METHOTREXATE
     Indication: RHEUMATOID ARTHRITIS
     Route: 048
     Dates: start: 2013, end: 2013
  6. CELECOXIB. [Suspect]
     Active Substance: CELECOXIB
     Indication: RHEUMATOID ARTHRITIS
     Route: 048
     Dates: start: 2013, end: 2013
  7. CELECOXIB. [Suspect]
     Active Substance: CELECOXIB
     Indication: RHEUMATOID ARTHRITIS
     Route: 048
     Dates: start: 2013, end: 2013
  8. CALTRATE +D [Concomitant]
     Indication: PROPHYLAXIS
     Route: 048
     Dates: start: 2013
  9. LEFLUNOMIDE. [Suspect]
     Active Substance: LEFLUNOMIDE
     Indication: RHEUMATOID ARTHRITIS
     Route: 048
     Dates: start: 2013, end: 2013
  10. TEPRENONE [Concomitant]
     Active Substance: TEPRENONE
     Indication: GASTRITIS PROPHYLAXIS
     Route: 048
     Dates: start: 2013
  11. CEFTIZOXIME [Concomitant]
     Active Substance: CEFTIZOXIME
     Indication: ANTI-INFECTIVE THERAPY
     Dosage: DRIP
     Dates: start: 2013, end: 2013
  12. PANTOPRAZOLE [Concomitant]
     Active Substance: PANTOPRAZOLE
     Indication: GASTRITIS PROPHYLAXIS
     Route: 048
     Dates: start: 2013, end: 2013

REACTIONS (19)
  - Thrombocytopenia [Recovered/Resolved]
  - Lung infection [Recovered/Resolved]
  - Tonsillitis bacterial [Recovering/Resolving]
  - Mouth ulceration [Recovering/Resolving]
  - Productive cough [Recovered/Resolved]
  - C-reactive protein increased [Recovered/Resolved]
  - Gastrointestinal haemorrhage [Recovered/Resolved]
  - Aspartate aminotransferase increased [Recovered/Resolved]
  - Alanine aminotransferase increased [Recovered/Resolved]
  - Cough [Recovered/Resolved]
  - Hyperpyrexia [Recovered/Resolved]
  - Oropharyngeal pain [Recovering/Resolving]
  - Pneumonitis [Recovered/Resolved]
  - Agranulocytosis [Recovered/Resolved]
  - Bone marrow failure [Recovered/Resolved]
  - Haemoptysis [Recovered/Resolved]
  - Mean cell haemoglobin concentration decreased [Recovered/Resolved]
  - Occult blood positive [Recovered/Resolved]
  - Hepatotoxicity [Recovered/Resolved]

NARRATIVE: CASE EVENT DATE: 2013
